FAERS Safety Report 7082898-4 (Version None)
Quarter: 2010Q4

REPORT INFORMATION
  Report Type: 
  Country: None (occurrence: None)
  Receive Date: 20101104
  Receipt Date: 20101025
  Transmission Date: 20110411
  Serious: Yes (Life-Threatening, Hospitalization, Other)
  Sender: FDA-Public Use
  Company Number: PHHY2010DE73786

PATIENT
  Sex: Male

DRUGS (7)
  1. CIBACEN [Suspect]
     Dosage: UNK
     Route: 048
     Dates: start: 20101025
  2. ZOLPIDEM [Suspect]
     Dosage: 10 MG
     Route: 048
     Dates: start: 20101025
  3. SERTRALINE HYDROCHLORIDE [Suspect]
     Dosage: 100 MG
     Dates: start: 20101025
  4. ALPRAZOLAM [Suspect]
     Dosage: 1 MG
     Route: 048
     Dates: start: 20101025
  5. DOXYLAMINE [Suspect]
     Dosage: 25 MG
     Dates: start: 20101025
  6. BUFLOMEDIL [Suspect]
     Dosage: 300 MG
     Route: 048
     Dates: start: 20101025
  7. TRENTAL [Suspect]
     Dosage: UNK
     Route: 048
     Dates: start: 20101025

REACTIONS (5)
  - COMA [None]
  - INTENTIONAL OVERDOSE [None]
  - MULTIPLE DRUG OVERDOSE INTENTIONAL [None]
  - RESPIRATORY DEPRESSION [None]
  - SUICIDE ATTEMPT [None]
